FAERS Safety Report 9760327 (Version 1)
Quarter: 2013Q4

REPORT INFORMATION
  Report Type: Spontaneous
  Country: US (occurrence: US)
  Receive Date: 20131216
  Receipt Date: 20131216
  Transmission Date: 20140711
  Serious: No
  Sender: FDA-Public Use
  Company Number: US-GILEAD-2010-0028890

PATIENT
  Age: 67 Year
  Sex: Male

DRUGS (11)
  1. LETAIRIS [Suspect]
     Indication: COR PULMONALE CHRONIC
     Route: 048
     Dates: start: 20091029
  2. LETAIRIS [Suspect]
     Route: 048
  3. ABSORBINE JR [Concomitant]
  4. LISINOPRIL [Concomitant]
  5. ASPIRIN [Concomitant]
  6. HYDROCHLOROTHIAZIDE [Concomitant]
  7. ZETIA [Concomitant]
  8. PREDNISONE [Concomitant]
  9. WARFARIN [Concomitant]
  10. AZATHIOPRINE [Concomitant]
  11. LIPITOR [Concomitant]

REACTIONS (1)
  - Dyspnoea [Not Recovered/Not Resolved]
